FAERS Safety Report 4587424-7 (Version None)
Quarter: 2005Q1

REPORT INFORMATION
  Report Type: 
  Country: None (occurrence: None)
  Receive Date: 20050215
  Receipt Date: 20050131
  Transmission Date: 20050727
  Serious: Yes (Hospitalization, Other)
  Sender: FDA-Public Use
  Company Number: 2004119689

PATIENT
  Sex: Male

DRUGS (6)
  1. CELEBREX [Suspect]
     Indication: OSTEOARTHRITIS
     Dosage: 200 MG, ORAL
     Route: 048
     Dates: start: 20020130, end: 20021220
  2. BEXTRA [Suspect]
     Indication: ARTHRITIS
     Dosage: 20 MG, ORAL
     Route: 048
     Dates: start: 20030813
  3. ALLOPURINOL [Concomitant]
  4. TOLPERISONE (TOLPERISONE) [Concomitant]
  5. BUPIVACAINE [Concomitant]
  6. SUPERTENDIN  (CYANOCOBALAMIN, DEXAMETHASONE, DIPHENHYDRAMINE HYDROCHLO [Concomitant]

REACTIONS (5)
  - ARRHYTHMIA [None]
  - DRUG INTOLERANCE [None]
  - EPICONDYLITIS [None]
  - GASTRIC ULCER [None]
  - GASTRIC ULCER HAEMORRHAGE [None]
